FAERS Safety Report 18153210 (Version 2)
Quarter: 2020Q4

REPORT INFORMATION
  Report Type: Report from Study
  Country: ES (occurrence: ES)
  Receive Date: 20200815
  Receipt Date: 20201005
  Transmission Date: 20210113
  Serious: Yes (Hospitalization)
  Sender: FDA-Public Use
  Company Number: ES-ROCHE-2658939

PATIENT
  Age: 77 Year
  Sex: Male
  Weight: 70 kg

DRUGS (3)
  1. PEMETREXED. [Suspect]
     Active Substance: PEMETREXED
     Indication: PLEURAL MESOTHELIOMA MALIGNANT
     Dosage: THE MOST RECENT DOSE OF PEMETREXED (905 MG) PRIOR TO SAE ONSET WAS ON 31/JUL/2020
     Route: 042
     Dates: start: 20200508
  2. CARBOPLATIN. [Suspect]
     Active Substance: CARBOPLATIN
     Indication: PLEURAL MESOTHELIOMA MALIGNANT
     Dosage: THE MOST RECENT DOSE OF CARBOPLATIN (465 MG) PRIOR TO SAE ONSET WAS ON 31/JUL/2020
     Route: 042
     Dates: start: 20200508
  3. BEVACIZUMAB. [Suspect]
     Active Substance: BEVACIZUMAB
     Indication: PLEURAL MESOTHELIOMA MALIGNANT
     Dosage: STENGTH: 400 MG/16 ML?THE MOST RECENT DOSE OF BEVACIZUMAB (1050 MG) PRIOR TO ONSET OF SERIOUS ADVERS
     Route: 042
     Dates: start: 20200508

REACTIONS (1)
  - Pyrexia [Recovered/Resolved]

NARRATIVE: CASE EVENT DATE: 20200810
